FAERS Safety Report 9251104 (Version 2)
Quarter: 2013Q3

REPORT INFORMATION
  Report Type: Spontaneous
  Country: US (occurrence: US)
  Receive Date: 20130424
  Receipt Date: 20130705
  Transmission Date: 20140515
  Serious: Yes (Hospitalization, Disabling)
  Sender: FDA-Public Use
  Company Number: US-ASTRAZENECA-2013SE27450

PATIENT
  Age: 516 Month
  Sex: Male

DRUGS (23)
  1. NEXIUM [Suspect]
     Indication: GASTROOESOPHAGEAL REFLUX DISEASE
     Dosage: TWICE A DAY
     Route: 048
  2. NEXIUM [Suspect]
     Indication: DYSPEPSIA
     Dosage: TWICE A DAY
     Route: 048
  3. NEXIUM [Suspect]
     Indication: GASTROOESOPHAGEAL REFLUX DISEASE
     Route: 048
     Dates: start: 20050311
  4. NEXIUM [Suspect]
     Indication: DYSPEPSIA
     Route: 048
     Dates: start: 20050311
  5. PRILOSEC [Suspect]
     Route: 048
  6. ANTACID CALCIUM SUPPLEMENT [Concomitant]
  7. PREVACID [Concomitant]
     Dosage: ONCE
  8. PREVACID [Concomitant]
     Dosage: TWICE
  9. ZANTAC [Concomitant]
     Dates: start: 1994
  10. TUMS [Concomitant]
     Dosage: 2-4 TABLETS A DAY
     Dates: start: 1993
  11. MILK OF MAGNESIA [Concomitant]
     Dosage: 2-3 TEASPOONS A DAY
     Dates: start: 1993
  12. ROLAIDS [Concomitant]
     Dates: start: 1993
  13. PEPTO-BISMOL [Concomitant]
     Dates: start: 1993
  14. MYLANTA [Concomitant]
     Dosage: 2-3 TEASPOONS A DAY
     Dates: start: 1993
  15. ALKA-SELTZERS [Concomitant]
     Dosage: 2 TABLETS
     Dates: start: 1993
  16. SIMVASTATIN [Concomitant]
     Indication: BLOOD CHOLESTEROL
     Dates: start: 20110708
  17. LEVOTHYROXINE [Concomitant]
     Indication: THYROID DISORDER
     Dates: start: 20110708
  18. LEVOTHYROXINE [Concomitant]
     Indication: HYPERTHYROIDISM
     Dates: start: 20110708
  19. IBUPROFEN [Concomitant]
     Indication: THYROID DISORDER
     Dates: start: 20110627
  20. ASPIRIN [Concomitant]
  21. CYCLOBENZAPR [Concomitant]
     Dates: start: 20110621
  22. DIAZEPAM [Concomitant]
     Dates: start: 20110726
  23. PREDNISONE [Concomitant]
     Dates: start: 20120608

REACTIONS (16)
  - Limb discomfort [Unknown]
  - Nasopharyngitis [Unknown]
  - Influenza [Unknown]
  - Sinus disorder [Unknown]
  - Dyspepsia [Unknown]
  - Back disorder [Unknown]
  - Arthralgia [Unknown]
  - Ear disorder [Unknown]
  - Osteoarthritis [Unknown]
  - Osteoporosis [Unknown]
  - Bone disorder [Unknown]
  - Multiple fractures [Unknown]
  - Bone density decreased [Unknown]
  - Hyperthyroidism [Unknown]
  - Upper respiratory tract infection [Unknown]
  - Influenza like illness [Unknown]
